FAERS Safety Report 22969703 (Version 9)
Quarter: 2025Q4

REPORT INFORMATION
  Report Type: Report from Study
  Country: US (occurrence: US)
  Receive Date: 20230922
  Receipt Date: 20251001
  Transmission Date: 20260118
  Serious: Yes (Hospitalization, Other)
  Sender: TAKEDA
  Company Number: US-TAKEDA-2023TUS091484

PATIENT
  Age: 12 Year
  Sex: Male
  Weight: 37 kg

DRUGS (9)
  1. TEDUGLUTIDE [Suspect]
     Active Substance: TEDUGLUTIDE
     Indication: Short-bowel syndrome
     Dosage: 1.8 MILLIGRAM, QD
     Dates: start: 20230602, end: 20230703
  2. TEDUGLUTIDE [Suspect]
     Active Substance: TEDUGLUTIDE
  3. TEDUGLUTIDE [Suspect]
     Active Substance: TEDUGLUTIDE
  4. TEDUGLUTIDE [Suspect]
     Active Substance: TEDUGLUTIDE
  5. SULFAMETHOXAZOLE AND TRIMETHOPRIM [Concomitant]
     Active Substance: SULFAMETHOXAZOLE\TRIMETHOPRIM
     Indication: Gastrointestinal microorganism overgrowth
     Dosage: 5 MILLILITER, BID
     Dates: start: 20221102
  6. CHOLECALCIFEROL [Concomitant]
     Active Substance: CHOLECALCIFEROL
     Indication: Short-bowel syndrome
     Dosage: 1250 MICROGRAM, 3/WEEK
     Dates: start: 20221102
  7. METRONIDAZOLE [Concomitant]
     Active Substance: METRONIDAZOLE
     Indication: Gastrointestinal microorganism overgrowth
     Dosage: 4 MILLILITER
  8. CALCIUM CARBONATE [Concomitant]
     Active Substance: CALCIUM CARBONATE
     Indication: Parenteral nutrition
     Dosage: UNK UNK, QD
     Dates: start: 20221102
  9. LOPERAMIDE [Concomitant]
     Active Substance: LOPERAMIDE
     Indication: Short-bowel syndrome
     Dosage: UNK UNK, TID
     Dates: start: 20200715

REACTIONS (3)
  - Anastomotic ulcer haemorrhage [Recovered/Resolved]
  - Inguinal hernia [Recovered/Resolved]
  - Cryptorchism [Recovered/Resolved]

NARRATIVE: CASE EVENT DATE: 20230625
